FAERS Safety Report 8637584 (Version 2)
Quarter: 2012Q4

REPORT INFORMATION
  Report Type: Report from Study
  Country: JP (occurrence: JP)
  Receive Date: 20120627
  Receipt Date: 20120904
  Transmission Date: 20130627
  Serious: Yes (Disabling, Other)
  Sender: FDA-Public Use
  Company Number: PHHY2012JP054561

PATIENT
  Age: 71 Year
  Sex: Female

DRUGS (13)
  1. ICL670A [Suspect]
     Indication: IRON OVERLOAD
     Dosage: 500 mg, daily
     Route: 048
     Dates: start: 20110202, end: 20111115
  2. ICL670A [Suspect]
     Dosage: 750 mg, daily
     Route: 048
     Dates: start: 20111116, end: 20111129
  3. ICL670A [Suspect]
     Dosage: 1000 mg, daily
     Route: 048
     Dates: start: 20111130, end: 20111214
  4. ADALAT CR [Concomitant]
     Dosage: 20 mg, UNK
     Route: 048
     Dates: start: 20110202
  5. GASTER [Concomitant]
     Dosage: 10 mg, UNK
     Route: 048
     Dates: start: 20110202
  6. HICEE [Concomitant]
     Dosage: 3 DF, UNK
     Route: 048
     Dates: start: 20110202
  7. RED BLOOD CELLS, LEUCOCYTE DEPLETED [Concomitant]
     Dosage: 2 U, every 2 weeks
     Dates: start: 20110216, end: 20110719
  8. RED BLOOD CELLS, LEUCOCYTE DEPLETED [Concomitant]
     Dosage: 4 U, UNK
     Dates: start: 20110720
  9. RED BLOOD CELLS, LEUCOCYTE DEPLETED [Concomitant]
     Dosage: 2 U, every 2 weeks
     Dates: start: 20110727, end: 20110803
  10. RED BLOOD CELLS, LEUCOCYTE DEPLETED [Concomitant]
     Dosage: 2 U, every 2 weeks
     Dates: start: 20110812, end: 20111101
  11. RED BLOOD CELLS, LEUCOCYTE DEPLETED [Concomitant]
     Dosage: 4 U, every 2 weeks
     Dates: start: 20111102, end: 20111213
  12. RED BLOOD CELLS, LEUCOCYTE DEPLETED [Concomitant]
     Dosage: 2 U, every 2 weeks
     Dates: start: 20111214, end: 20111227
  13. RED BLOOD CELLS, LEUCOCYTE DEPLETED [Concomitant]
     Dosage: 2 U, every 2 weeks
     Dates: start: 20111228, end: 20120202

REACTIONS (7)
  - Subdural haematoma [Recovering/Resolving]
  - Cholecystitis [Recovering/Resolving]
  - Fall [Recovered/Resolved]
  - Contusion [Recovered/Resolved]
  - Hepatic function abnormal [Recovered/Resolved]
  - Blood urea increased [Recovered/Resolved]
  - Haemorrhage subcutaneous [Recovering/Resolving]
